APPROVED DRUG PRODUCT: IRBESARTAN
Active Ingredient: IRBESARTAN
Strength: 150MG
Dosage Form/Route: TABLET;ORAL
Application: A203161 | Product #002
Applicant: CHARTWELL RX SCIENCES LLC
Approved: Sep 27, 2012 | RLD: No | RS: No | Type: DISCN